FAERS Safety Report 25964033 (Version 1)
Quarter: 2025Q4

REPORT INFORMATION
  Report Type: Spontaneous
  Country: EU (occurrence: EU)
  Receive Date: 20251027
  Receipt Date: 20251027
  Transmission Date: 20260118
  Serious: Yes (Life-Threatening, Hospitalization, Other)
  Sender: FERRING
  Company Number: EU-FERRINGPH-IT-008568

PATIENT

DRUGS (2)
  1. DESMOPRESSIN ACETATE [Interacting]
     Active Substance: DESMOPRESSIN ACETATE
     Indication: Diabetes insipidus
     Dosage: 240 UG, DAILY  (60 UG, 4 TABLETS DAILY)
     Route: 060
  2. KETOPROFEN [Interacting]
     Active Substance: KETOPROFEN
     Indication: Neck pain
     Dosage: 200 MG, DAILY
     Route: 048

REACTIONS (9)
  - Labelled drug-drug interaction medication error [Unknown]
  - Coma [Recovered/Resolved]
  - Water intoxication [Recovered/Resolved]
  - Hyponatraemia [Recovered/Resolved]
  - Asthenia [Recovered/Resolved]
  - Vomiting [Recovered/Resolved]
  - Generalised tonic-clonic seizure [Recovered/Resolved]
  - Lactic acidosis [Recovered/Resolved]
  - Rhabdomyolysis [Recovered/Resolved]
